FAERS Safety Report 9995023 (Version 2)
Quarter: 2014Q2

REPORT INFORMATION
  Report Type: Spontaneous
  Country: CH (occurrence: None)
  Receive Date: 20140306
  Receipt Date: 20140408
  Transmission Date: 20141212
  Serious: Yes (Hospitalization)
  Sender: FDA-Public Use
  Company Number: 20140105

PATIENT
  Age: 74 Year
  Sex: Male
  Weight: 80 kg

DRUGS (7)
  1. FERINJECT [Suspect]
     Indication: ANAEMIA
     Dosage: 1 IN 1 TOTAL
     Route: 041
     Dates: start: 20131004, end: 20131004
  2. OMEP(OMEPRAZOLE) [Concomitant]
  3. RAMI LICH(RAMIPRIL) [Concomitant]
  4. SIMVAHEXAL(SIMVASTATIN) [Concomitant]
  5. STARLIX(NATEGLINIDE) [Concomitant]
  6. VIDAGLIPTINE [Concomitant]
  7. FUROSEMIDE [Concomitant]

REACTIONS (5)
  - Wrong technique in drug usage process [None]
  - Extravasation [None]
  - Injection site discolouration [None]
  - Bladder cancer [None]
  - Infusion site extravasation [None]
